FAERS Safety Report 21544173 (Version 1)
Quarter: 2022Q4

REPORT INFORMATION
  Report Type: Report from Study
  Country: IT (occurrence: IT)
  Receive Date: 20221102
  Receipt Date: 20221102
  Transmission Date: 20230112
  Serious: Yes (Other)
  Sender: FDA-Public Use
  Company Number: None

PATIENT
  Age: 55 Year
  Sex: Male

DRUGS (1)
  1. IBUPROFEN [Suspect]
     Active Substance: IBUPROFEN
     Indication: Pyrexia
     Dosage: IBUPROFENE
     Route: 065
     Dates: start: 20221009, end: 20221009

REACTIONS (2)
  - Oedema mouth [Unknown]
  - Oral mucosal erythema [Unknown]

NARRATIVE: CASE EVENT DATE: 20221009
